FAERS Safety Report 16729719 (Version 2)
Quarter: 2020Q2

REPORT INFORMATION
  Report Type: Report from Study
  Country: AU (occurrence: AU)
  Receive Date: 20190822
  Receipt Date: 20200401
  Transmission Date: 20200713
  Serious: Yes (Other)
  Sender: FDA-Public Use
  Company Number: AU-ROCHE-2382219

PATIENT
  Sex: Female

DRUGS (1)
  1. OCREVUS [Suspect]
     Active Substance: OCRELIZUMAB
     Indication: RELAPSING-REMITTING MULTIPLE SCLEROSIS
     Dosage: YES
     Route: 041
     Dates: start: 20181130

REACTIONS (3)
  - Multiple sclerosis [Not Recovered/Not Resolved]
  - Malaise [Unknown]
  - Drug ineffective [Unknown]
